FAERS Safety Report 5951687-3 (Version None)
Quarter: 2008Q4

REPORT INFORMATION
  Report Type: 
  Country: None (occurrence: None)
  Receive Date: 20081113
  Receipt Date: 20081030
  Transmission Date: 20090506
  Serious: Yes (Hospitalization)
  Sender: FDA-Public Use
  Company Number: BE-GENENTECH-271093

PATIENT
  Sex: Male

DRUGS (8)
  1. RITUXIMAB [Suspect]
     Indication: NON-HODGKIN'S LYMPHOMA
     Dosage: 750 MG, UNK
     Route: 042
     Dates: start: 20080812
  2. SOLU-MEDROL [Suspect]
     Indication: NON-HODGKIN'S LYMPHOMA
     Dosage: 120 MG, UNK
     Route: 042
     Dates: start: 20080812
  3. METHOTREXATE [Suspect]
     Indication: NON-HODGKIN'S LYMPHOMA
     Dosage: 6 G, UNK
     Route: 042
     Dates: start: 20080813
  4. CYTARABINE [Suspect]
     Indication: NON-HODGKIN'S LYMPHOMA
     Dosage: 200 MG, UNK
     Route: 042
     Dates: start: 20081008
  5. DEPOCYTE [Suspect]
     Indication: NON-HODGKIN'S LYMPHOMA
     Dosage: 50 MG, UNK
     Route: 037
  6. VINCRISTINE [Suspect]
     Indication: NON-HODGKIN'S LYMPHOMA
     Dosage: 2 MG, UNK
     Route: 042
  7. ENDOXAN [Suspect]
     Indication: NON-HODGKIN'S LYMPHOMA
     Dosage: 1000 MG, UNK
     Route: 042
     Dates: start: 20080814
  8. DOXORUBICIN HCL [Suspect]
     Indication: NON-HODGKIN'S LYMPHOMA
     Dosage: 120 MG, UNK
     Route: 042
     Dates: start: 20080814

REACTIONS (1)
  - PNEUMATOSIS INTESTINALIS [None]
